FAERS Safety Report 8444287-7 (Version None)
Quarter: 2012Q2

REPORT INFORMATION
  Report Type: 
  Country: None (occurrence: None)
  Receive Date: 20120618
  Receipt Date: 20120611
  Transmission Date: 20120825
  Serious: Yes (Death, Hospitalization)
  Sender: FDA-Public Use
  Company Number: DE-ASTELLAS-2012US004847

PATIENT
  Sex: Male
  Weight: 65 kg

DRUGS (1)
  1. ERLOTINIB HYDROCHLORIDE [Suspect]
     Indication: BRONCHIAL CARCINOMA
     Dosage: 75 MG, UNKNOWN/D
     Route: 048
     Dates: start: 20111201, end: 20120501

REACTIONS (2)
  - THROMBOSIS [None]
  - NEOPLASM MALIGNANT [None]
